FAERS Safety Report 7053922 (Version 8)
Quarter: 2012Q4

REPORT INFORMATION
  Report Type: Report from Study
  Country: SE (occurrence: SE)
  Receive Date: 20090717
  Receipt Date: 20121130
  Transmission Date: 20130627
  Serious: Yes (Other)
  Sender: FDA-Public Use
  Company Number: SE-ABBOTT-09P-150-0583582-00

PATIENT
  Age: 45 Year
  Sex: Female
  Weight: 53 kg

DRUGS (5)
  1. HUMIRA [Suspect]
     Indication: CROHN^S DISEASE
     Dosage: Baseline
     Route: 058
     Dates: start: 20071220, end: 20071220
  2. HUMIRA [Suspect]
     Dosage: Week 2
     Route: 058
  3. HUMIRA [Suspect]
     Route: 058
     Dates: start: 20081222
  4. LOPERAMID [Concomitant]
     Indication: DIARRHOEA
     Dates: start: 2008
  5. PREDNISONE [Concomitant]
     Indication: CROHN^S DISEASE
     Dates: start: 200712, end: 200812

REACTIONS (1)
  - Rectal stenosis [Recovered/Resolved]
